FAERS Safety Report 7746755-X (Version None)
Quarter: 2011Q3

REPORT INFORMATION
  Report Type: 
  Country: None (occurrence: None)
  Receive Date: 20110909
  Receipt Date: 20110901
  Transmission Date: 20111222
  Serious: Yes (Hospitalization, Other)
  Sender: FDA-Public Use
  Company Number: 201111022

PATIENT
  Sex: Male

DRUGS (1)
  1. LIORESAL [Suspect]
     Indication: MUSCLE SPASTICITY
     Dosage: 175 MCG, DAILY, INTRATHECAL
     Route: 037

REACTIONS (7)
  - SHUNT MALFUNCTION [None]
  - PRURITUS [None]
  - RESTLESSNESS [None]
  - AGITATION [None]
  - MOOD SWINGS [None]
  - HYPERTONIA [None]
  - IRRITABILITY [None]
